FAERS Safety Report 7315526-0 (Version None)
Quarter: 2011Q1

REPORT INFORMATION
  Report Type: 
  Country: None (occurrence: None)
  Receive Date: 20110218
  Receipt Date: 20110218
  Transmission Date: 20110831
  Serious: Yes (Hospitalization)
  Sender: FDA-Public Use
  Company Number: None

PATIENT
  Age: 83 Year
  Sex: Male
  Weight: 79.2 kg

DRUGS (14)
  1. GLUCOSAMINE [Concomitant]
  2. DOXCIZINE [Concomitant]
  3. VIT D [Concomitant]
  4. EPOGEN [Concomitant]
  5. LASIX [Concomitant]
  6. METOPROLOL [Concomitant]
  7. AMLODIPINE [Concomitant]
  8. IRON [Concomitant]
  9. SODIUM BICARBONATE [Suspect]
  10. COUMADIN [Suspect]
     Indication: DEEP VEIN THROMBOSIS
     Dosage: DAILY PO
     Route: 048
  11. HYDROCHLOROTHIAZIDE [Concomitant]
  12. ASPIRIN [Suspect]
     Indication: CORONARY ARTERY DISEASE
     Dosage: 81 MG PO
     Route: 048
  13. CHOLCHICINE [Concomitant]
  14. ZEMPLAR [Concomitant]

REACTIONS (4)
  - RECTAL ULCER HAEMORRHAGE [None]
  - DIARRHOEA [None]
  - COLONIC POLYP [None]
  - HAEMOGLOBIN DECREASED [None]
